FAERS Safety Report 14707004 (Version 1)
Quarter: 2018Q2

REPORT INFORMATION
  Report Type: Spontaneous
  Country: DE (occurrence: DE)
  Receive Date: 20180403
  Receipt Date: 20180403
  Transmission Date: 20180711
  Serious: Yes (Congenital Anomaly)
  Sender: FDA-Public Use
  Company Number: DE-TEVA-2018-DE-877721

PATIENT
  Age: 0 Year
  Sex: Male
  Weight: 4.2 kg

DRUGS (3)
  1. QUETIAPINE. [Suspect]
     Active Substance: QUETIAPINE
     Indication: DEPRESSION
     Dosage: 300 [MG/D ]/ SINCE 2009; INITIALLY 300 MG/D, SLOW REDUCTION: AT WK 13 4/7 ALREADY 150 MG/D,AT WEEK 2
     Route: 064
     Dates: start: 20160612, end: 20170321
  2. ELEVIT [Concomitant]
     Active Substance: FOLIC ACID\IRON\MINERALS\VITAMINS
     Indication: PROPHYLAXIS OF NEURAL TUBE DEFECT
     Route: 064
     Dates: start: 20160612, end: 20170321
  3. L-THYROXIN [Concomitant]
     Active Substance: LEVOTHYROXINE SODIUM
     Indication: HYPOTHYROIDISM
     Dosage: 75 MICROGRAM DAILY; 75 [?G/D ]
     Route: 064
     Dates: start: 20160915, end: 20170321

REACTIONS (1)
  - Cryptorchism [Recovered/Resolved with Sequelae]
